FAERS Safety Report 20065217 (Version 2)
Quarter: 2021Q4

REPORT INFORMATION
  Report Type: Spontaneous
  Country: CA (occurrence: CA)
  Receive Date: 20211113
  Receipt Date: 20211224
  Transmission Date: 20220303
  Serious: Yes (Hospitalization, Disabling, Other)
  Sender: FDA-Public Use
  Company Number: CA-SAMSUNG BIOEPIS-SB-2021-25908

PATIENT
  Age: 41 Year
  Sex: Female
  Weight: 90 kg

DRUGS (256)
  1. INFLIXIMAB [Suspect]
     Active Substance: INFLIXIMAB
     Indication: Rheumatoid arthritis
     Dosage: UNKNOWN
     Route: 042
  2. INFLIXIMAB [Suspect]
     Active Substance: INFLIXIMAB
     Indication: Psoriatic arthropathy
     Route: 048
  3. INFLIXIMAB [Suspect]
     Active Substance: INFLIXIMAB
     Dosage: UNKNOWN
     Route: 048
  4. INFLIXIMAB [Suspect]
     Active Substance: INFLIXIMAB
     Route: 042
  5. INFLIXIMAB [Suspect]
     Active Substance: INFLIXIMAB
     Route: 042
  6. ADALIMUMAB [Suspect]
     Active Substance: ADALIMUMAB
     Indication: Rheumatoid arthritis
     Route: 058
  7. ADALIMUMAB [Suspect]
     Active Substance: ADALIMUMAB
     Indication: Psoriatic arthropathy
     Route: 058
  8. ADALIMUMAB [Suspect]
     Active Substance: ADALIMUMAB
     Route: 058
  9. ADALIMUMAB [Suspect]
     Active Substance: ADALIMUMAB
     Dosage: UNKNOWN
     Route: 058
  10. ADALIMUMAB [Suspect]
     Active Substance: ADALIMUMAB
     Dosage: SOLUTION SUBCUTANEOUS
     Route: 058
  11. ETANERCEPT [Suspect]
     Active Substance: ETANERCEPT
     Indication: Rheumatoid arthritis
     Dosage: UNKNOWN
     Route: 065
  12. ETANERCEPT [Suspect]
     Active Substance: ETANERCEPT
     Indication: Psoriatic arthropathy
     Route: 065
  13. ETANERCEPT [Suspect]
     Active Substance: ETANERCEPT
     Indication: Psoriasis
     Route: 065
  14. ETANERCEPT [Suspect]
     Active Substance: ETANERCEPT
     Route: 058
  15. ETANERCEPT [Suspect]
     Active Substance: ETANERCEPT
     Dosage: UNKNOWN
     Route: 058
  16. ETANERCEPT [Suspect]
     Active Substance: ETANERCEPT
     Route: 065
  17. ACTEMRA [Suspect]
     Active Substance: TOCILIZUMAB
     Indication: Rheumatoid arthritis
     Route: 065
  18. ACTEMRA [Suspect]
     Active Substance: TOCILIZUMAB
     Route: 065
  19. ACTEMRA [Suspect]
     Active Substance: TOCILIZUMAB
     Dosage: EVERY 4 WEEKS
     Route: 065
  20. ACTEMRA [Suspect]
     Active Substance: TOCILIZUMAB
     Route: 065
  21. ACTEMRA [Suspect]
     Active Substance: TOCILIZUMAB
     Route: 042
  22. ACTEMRA [Suspect]
     Active Substance: TOCILIZUMAB
     Dosage: ONCE EVERY 4 WEEKS
     Route: 065
  23. ACTEMRA [Suspect]
     Active Substance: TOCILIZUMAB
     Route: 065
  24. ACTEMRA [Suspect]
     Active Substance: TOCILIZUMAB
     Route: 065
  25. ACTEMRA [Suspect]
     Active Substance: TOCILIZUMAB
     Route: 042
  26. ACTEMRA [Suspect]
     Active Substance: TOCILIZUMAB
     Route: 065
  27. ACTEMRA [Suspect]
     Active Substance: TOCILIZUMAB
     Route: 065
  28. ACTEMRA [Suspect]
     Active Substance: TOCILIZUMAB
     Dosage: ONCE EVERY 4 WEEKS
     Route: 042
  29. ALENDRONIC ACID [Suspect]
     Active Substance: ALENDRONIC ACID
     Indication: Product used for unknown indication
     Route: 065
  30. ALENDRONIC ACID [Suspect]
     Active Substance: ALENDRONIC ACID
     Route: 065
  31. ALENDRONIC ACID [Suspect]
     Active Substance: ALENDRONIC ACID
     Route: 065
  32. ALENDRONIC ACID [Suspect]
     Active Substance: ALENDRONIC ACID
     Dosage: UNKNOWN
     Route: 065
  33. ALENDRONIC ACID [Suspect]
     Active Substance: ALENDRONIC ACID
     Route: 058
  34. ALENDRONIC ACID [Suspect]
     Active Substance: ALENDRONIC ACID
     Dosage: UNKNOWN
     Route: 048
  35. ALENDRONIC ACID [Suspect]
     Active Substance: ALENDRONIC ACID
     Route: 065
  36. ALENDRONIC ACID [Suspect]
     Active Substance: ALENDRONIC ACID
     Route: 048
  37. HYDROXYCHLOROQUINE SULFATE [Suspect]
     Active Substance: HYDROXYCHLOROQUINE SULFATE
     Indication: Rheumatoid arthritis
     Dosage: UNKNOWN
     Route: 065
  38. IBUPROFEN [Suspect]
     Active Substance: IBUPROFEN
     Indication: Product used for unknown indication
     Dosage: UNKNOWN
     Route: 048
  39. IBUPROFEN [Suspect]
     Active Substance: IBUPROFEN
     Route: 048
  40. IBUPROFEN [Suspect]
     Active Substance: IBUPROFEN
     Route: 048
  41. LEFLUNOMIDE [Suspect]
     Active Substance: LEFLUNOMIDE
     Indication: Product used for unknown indication
     Dosage: UNKNOWN
     Route: 065
  42. LEFLUNOMIDE [Suspect]
     Active Substance: LEFLUNOMIDE
     Route: 065
  43. LEFLUNOMIDE [Suspect]
     Active Substance: LEFLUNOMIDE
     Route: 048
  44. LEFLUNOMIDE [Suspect]
     Active Substance: LEFLUNOMIDE
     Route: 048
  45. LEFLUNOMIDE [Suspect]
     Active Substance: LEFLUNOMIDE
     Route: 048
  46. LEFLUNOMIDE [Suspect]
     Active Substance: LEFLUNOMIDE
     Dosage: UNKNOWN
     Route: 048
  47. LEFLUNOMIDE [Suspect]
     Active Substance: LEFLUNOMIDE
     Dosage: UNKNOWN
     Route: 048
  48. LEFLUNOMIDE [Suspect]
     Active Substance: LEFLUNOMIDE
     Dosage: UNKNOWN
     Route: 065
  49. ARAVA [Suspect]
     Active Substance: LEFLUNOMIDE
     Indication: Rheumatoid arthritis
     Route: 065
  50. ARAVA [Suspect]
     Active Substance: LEFLUNOMIDE
     Dosage: UNKNOWN
     Route: 065
  51. ARAVA [Suspect]
     Active Substance: LEFLUNOMIDE
     Route: 048
  52. ARAVA [Suspect]
     Active Substance: LEFLUNOMIDE
     Route: 048
  53. ARAVA [Suspect]
     Active Substance: LEFLUNOMIDE
     Route: 048
  54. AZATHIOPRINE [Suspect]
     Active Substance: AZATHIOPRINE
     Indication: Product used for unknown indication
     Dosage: UNKNOWN
     Route: 065
  55. BENADRYL [Suspect]
     Active Substance: DIPHENHYDRAMINE HYDROCHLORIDE
     Indication: Product used for unknown indication
     Dosage: UNKNOWN
     Route: 065
  56. CELEBREX [Suspect]
     Active Substance: CELECOXIB
     Indication: Rheumatoid arthritis
     Route: 048
  57. CELEBREX [Suspect]
     Active Substance: CELECOXIB
     Indication: Adenomatous polyposis coli
     Dosage: UNKNOWN
     Route: 065
  58. CELEBREX [Suspect]
     Active Substance: CELECOXIB
     Route: 048
  59. CELEBREX [Suspect]
     Active Substance: CELECOXIB
     Route: 048
  60. CYCLOSPORINE [Suspect]
     Active Substance: CYCLOSPORINE
     Indication: Rheumatoid arthritis
     Dosage: UNKNOWN
     Route: 048
  61. CYCLOSPORINE [Suspect]
     Active Substance: CYCLOSPORINE
     Indication: Psoriatic arthropathy
     Route: 065
  62. CYCLOSPORINE [Suspect]
     Active Substance: CYCLOSPORINE
     Dosage: UNKNOWN
     Route: 065
  63. CYCLOSPORINE [Suspect]
     Active Substance: CYCLOSPORINE
     Route: 065
  64. CYCLOSPORINE [Suspect]
     Active Substance: CYCLOSPORINE
     Dosage: EVERY 1 DAY
     Route: 065
  65. CIMZIA [Suspect]
     Active Substance: CERTOLIZUMAB PEGOL
     Indication: Psoriatic arthropathy
     Dosage: UNKNOWN
     Route: 058
  66. CIMZIA [Suspect]
     Active Substance: CERTOLIZUMAB PEGOL
     Dosage: UNKNOWN
     Route: 058
  67. CIMZIA [Suspect]
     Active Substance: CERTOLIZUMAB PEGOL
     Dosage: UNKNOWN
     Route: 065
  68. CODEINE [Suspect]
     Active Substance: CODEINE
     Indication: Product used for unknown indication
     Dosage: UNKNOWN
     Route: 065
  69. COSENTYX [Suspect]
     Active Substance: SECUKINUMAB
     Indication: Psoriatic arthropathy
     Route: 058
  70. COSENTYX [Suspect]
     Active Substance: SECUKINUMAB
     Dosage: UNKNOWN
     Route: 065
  71. ENBREL [Suspect]
     Active Substance: ETANERCEPT
     Indication: Rheumatoid arthritis
     Route: 065
  72. ENBREL [Suspect]
     Active Substance: ETANERCEPT
     Indication: Psoriatic arthropathy
     Dosage: UNKNOWN
     Route: 058
  73. ENBREL [Suspect]
     Active Substance: ETANERCEPT
     Indication: Psoriasis
     Route: 065
  74. ENBREL [Suspect]
     Active Substance: ETANERCEPT
     Route: 065
  75. ENBREL [Suspect]
     Active Substance: ETANERCEPT
     Route: 058
  76. ENBREL [Suspect]
     Active Substance: ETANERCEPT
     Route: 058
  77. ENBREL [Suspect]
     Active Substance: ETANERCEPT
     Route: 065
  78. ENBREL [Suspect]
     Active Substance: ETANERCEPT
     Route: 065
  79. ENBREL [Suspect]
     Active Substance: ETANERCEPT
     Route: 065
  80. ENBREL [Suspect]
     Active Substance: ETANERCEPT
     Route: 065
  81. ENBREL [Suspect]
     Active Substance: ETANERCEPT
     Dosage: UNKNOWN
     Route: 065
  82. ENBREL [Suspect]
     Active Substance: ETANERCEPT
     Route: 058
  83. ENBREL [Suspect]
     Active Substance: ETANERCEPT
     Route: 065
  84. ENBREL [Suspect]
     Active Substance: ETANERCEPT
     Route: 065
  85. ENBREL [Suspect]
     Active Substance: ETANERCEPT
     Route: 065
  86. ENBREL [Suspect]
     Active Substance: ETANERCEPT
     Route: 058
  87. FOSAMAX [Suspect]
     Active Substance: ALENDRONATE SODIUM
     Indication: Product used for unknown indication
     Route: 065
  88. FOSAMAX [Suspect]
     Active Substance: ALENDRONATE SODIUM
     Dosage: UNKNOWN
     Route: 065
  89. GOLD [Suspect]
     Active Substance: GOLD
     Indication: Product used for unknown indication
     Dosage: UNKNOWN
     Route: 065
  90. GOLD SODIUM THIOMALATE [Suspect]
     Active Substance: GOLD SODIUM THIOMALATE
     Indication: Product used for unknown indication
     Dosage: UNKNOWN
     Route: 065
  91. HUMIRA [Suspect]
     Active Substance: ADALIMUMAB
     Indication: Rheumatoid arthritis
     Dosage: UNKNOWN
     Route: 058
  92. HUMIRA [Suspect]
     Active Substance: ADALIMUMAB
     Indication: Psoriatic arthropathy
     Route: 058
  93. HUMIRA [Suspect]
     Active Substance: ADALIMUMAB
     Route: 058
  94. HUMIRA [Suspect]
     Active Substance: ADALIMUMAB
     Route: 058
  95. HUMIRA [Suspect]
     Active Substance: ADALIMUMAB
     Route: 058
  96. HUMIRA [Suspect]
     Active Substance: ADALIMUMAB
     Route: 058
  97. HUMIRA [Suspect]
     Active Substance: ADALIMUMAB
     Route: 058
  98. HUMIRA [Suspect]
     Active Substance: ADALIMUMAB
     Route: 058
  99. HUMIRA [Suspect]
     Active Substance: ADALIMUMAB
     Route: 058
  100. HUMIRA [Suspect]
     Active Substance: ADALIMUMAB
     Dosage: UNKNOWN
     Route: 065
  101. HUMIRA [Suspect]
     Active Substance: ADALIMUMAB
     Dosage: SOLUTION SUBCUTANEOUS
     Route: 058
  102. HUMIRA [Suspect]
     Active Substance: ADALIMUMAB
     Dosage: SOLUTION
     Route: 058
  103. HUMIRA [Suspect]
     Active Substance: ADALIMUMAB
     Dosage: SOLUTION
     Route: 058
  104. HYDROXYCHLOROQUINE [Suspect]
     Active Substance: HYDROXYCHLOROQUINE
     Indication: Rheumatoid arthritis
     Dosage: UNKNOWN
     Route: 048
  105. HYDROXYCHLOROQUINE [Suspect]
     Active Substance: HYDROXYCHLOROQUINE
     Route: 065
  106. HYDROXYCHLOROQUINE [Suspect]
     Active Substance: HYDROXYCHLOROQUINE
     Dosage: UNKNOWN
     Route: 065
  107. HYDROXYCHLOROQUINE [Suspect]
     Active Substance: HYDROXYCHLOROQUINE
     Route: 048
  108. HYDROXYCHLOROQUINE [Suspect]
     Active Substance: HYDROXYCHLOROQUINE
     Route: 048
  109. HYDROXYCHLOROQUINE [Suspect]
     Active Substance: HYDROXYCHLOROQUINE
     Route: 048
  110. HYDROXYCHLOROQUINE [Suspect]
     Active Substance: HYDROXYCHLOROQUINE
     Route: 048
  111. HYDROXYCHLOROQUINE [Suspect]
     Active Substance: HYDROXYCHLOROQUINE
     Route: 065
  112. HYDROXYCHLOROQUINE [Suspect]
     Active Substance: HYDROXYCHLOROQUINE
     Route: 048
  113. HYDROXYCHLOROQUINE [Suspect]
     Active Substance: HYDROXYCHLOROQUINE
     Route: 065
  114. HYDROXYCHLOROQUINE [Suspect]
     Active Substance: HYDROXYCHLOROQUINE
     Route: 065
  115. HYDROXYCHLOROQUINE [Suspect]
     Active Substance: HYDROXYCHLOROQUINE
     Route: 065
  116. IBUPROFEN [Suspect]
     Active Substance: IBUPROFEN
     Indication: Product used for unknown indication
     Route: 048
  117. IBUPROFEN [Suspect]
     Active Substance: IBUPROFEN
     Dosage: ONCE EVERY 24 HOURS
     Route: 048
  118. IBUPROFEN [Suspect]
     Active Substance: IBUPROFEN
     Route: 048
  119. IBUPROFEN [Suspect]
     Active Substance: IBUPROFEN
     Dosage: UNKNOWN
     Route: 048
  120. IBUPROFEN [Suspect]
     Active Substance: IBUPROFEN
     Dosage: UNKNOWN
     Route: 048
  121. IBUPROFEN [Suspect]
     Active Substance: IBUPROFEN
     Route: 048
  122. IBUPROFEN [Suspect]
     Active Substance: IBUPROFEN
     Route: 048
  123. IBUPROFEN [Suspect]
     Active Substance: IBUPROFEN
     Dosage: UNKNOWN
     Route: 048
  124. IBUPROFEN [Suspect]
     Active Substance: IBUPROFEN
     Route: 048
  125. LEFLUNOMIDE [Suspect]
     Active Substance: LEFLUNOMIDE
     Indication: Rheumatoid arthritis
     Route: 048
  126. LEFLUNOMIDE [Suspect]
     Active Substance: LEFLUNOMIDE
     Indication: Psoriatic arthropathy
     Dosage: UNKNOWN
     Route: 048
  127. LEFLUNOMIDE [Suspect]
     Active Substance: LEFLUNOMIDE
     Dosage: UNKNOWN
     Route: 065
  128. LEFLUNOMIDE [Suspect]
     Active Substance: LEFLUNOMIDE
     Route: 048
  129. LEFLUNOMIDE [Suspect]
     Active Substance: LEFLUNOMIDE
     Dosage: UNKNOWN
     Route: 065
  130. LEFLUNOMIDE [Suspect]
     Active Substance: LEFLUNOMIDE
     Route: 048
  131. LEFLUNOMIDE [Suspect]
     Active Substance: LEFLUNOMIDE
     Dosage: UNKNOWN
     Route: 065
  132. LEFLUNOMIDE [Suspect]
     Active Substance: LEFLUNOMIDE
     Route: 065
  133. LEFLUNOMIDE [Suspect]
     Active Substance: LEFLUNOMIDE
     Route: 048
  134. LEFLUNOMIDE [Suspect]
     Active Substance: LEFLUNOMIDE
     Route: 065
  135. LEFLUNOMIDE [Suspect]
     Active Substance: LEFLUNOMIDE
     Dosage: UNKNOWN
     Route: 065
  136. LEFLUNOMIDE [Suspect]
     Active Substance: LEFLUNOMIDE
     Route: 065
  137. LEFLUNOMIDE [Suspect]
     Active Substance: LEFLUNOMIDE
     Route: 065
  138. LEFLUNOMIDE [Suspect]
     Active Substance: LEFLUNOMIDE
     Dosage: UNKNOWN
     Route: 048
  139. METHOTREXATE [Suspect]
     Active Substance: METHOTREXATE
     Indication: Rheumatoid arthritis
     Route: 058
  140. METHOTREXATE [Suspect]
     Active Substance: METHOTREXATE
     Route: 065
  141. METHOTREXATE [Suspect]
     Active Substance: METHOTREXATE
     Route: 065
  142. METHOTREXATE [Suspect]
     Active Substance: METHOTREXATE
     Route: 065
  143. METHOTREXATE [Suspect]
     Active Substance: METHOTREXATE
     Route: 048
  144. METHOTREXATE [Suspect]
     Active Substance: METHOTREXATE
     Route: 065
  145. METHOTREXATE [Suspect]
     Active Substance: METHOTREXATE
     Route: 058
  146. METHOTREXATE [Suspect]
     Active Substance: METHOTREXATE
     Route: 058
  147. METHOTREXATE [Suspect]
     Active Substance: METHOTREXATE
     Route: 065
  148. METHOTREXATE [Suspect]
     Active Substance: METHOTREXATE
     Route: 048
  149. METHOTREXATE [Suspect]
     Active Substance: METHOTREXATE
     Route: 065
  150. METHOTREXATE [Suspect]
     Active Substance: METHOTREXATE
     Route: 058
  151. METHOTREXATE [Suspect]
     Active Substance: METHOTREXATE
     Route: 065
  152. METHOTREXATE [Suspect]
     Active Substance: METHOTREXATE
     Route: 048
  153. METHOTREXATE [Suspect]
     Active Substance: METHOTREXATE
     Route: 058
  154. METHOTREXATE [Suspect]
     Active Substance: METHOTREXATE
     Route: 048
  155. METHOTREXATE [Suspect]
     Active Substance: METHOTREXATE
     Route: 058
  156. METHOTREXATE [Suspect]
     Active Substance: METHOTREXATE
     Route: 065
  157. METHOTREXATE [Suspect]
     Active Substance: METHOTREXATE
     Route: 048
  158. METHOTREXATE [Suspect]
     Active Substance: METHOTREXATE
     Route: 058
  159. METHOTREXATE [Suspect]
     Active Substance: METHOTREXATE
     Route: 058
  160. METHOTREXATE [Suspect]
     Active Substance: METHOTREXATE
     Route: 065
  161. METHOTREXATE [Suspect]
     Active Substance: METHOTREXATE
     Route: 048
  162. METHOTREXATE [Suspect]
     Active Substance: METHOTREXATE
     Route: 058
  163. METHOTREXATE [Suspect]
     Active Substance: METHOTREXATE
     Dosage: UNKNOWN
     Route: 048
  164. METHOTREXATE [Suspect]
     Active Substance: METHOTREXATE
     Route: 065
  165. METHOTREXATE [Suspect]
     Active Substance: METHOTREXATE
     Route: 058
  166. METHOTREXATE [Suspect]
     Active Substance: METHOTREXATE
     Route: 048
  167. METHOTREXATE [Suspect]
     Active Substance: METHOTREXATE
     Route: 065
  168. METHOTREXATE [Suspect]
     Active Substance: METHOTREXATE
     Route: 058
  169. METHOTREXATE [Suspect]
     Active Substance: METHOTREXATE
     Route: 048
  170. METHOTREXATE [Suspect]
     Active Substance: METHOTREXATE
     Route: 065
  171. METHOTREXATE [Suspect]
     Active Substance: METHOTREXATE
     Route: 065
  172. METHOTREXATE [Suspect]
     Active Substance: METHOTREXATE
     Route: 065
  173. METHOTREXATE [Suspect]
     Active Substance: METHOTREXATE
     Route: 058
  174. METHOTREXATE [Suspect]
     Active Substance: METHOTREXATE
     Route: 065
  175. METHOTREXATE [Suspect]
     Active Substance: METHOTREXATE
     Route: 058
  176. METHOTREXATE [Suspect]
     Active Substance: METHOTREXATE
     Route: 058
  177. METHOTREXATE [Suspect]
     Active Substance: METHOTREXATE
     Route: 065
  178. METHOTREXATE [Suspect]
     Active Substance: METHOTREXATE
     Route: 058
  179. METHOTREXATE [Suspect]
     Active Substance: METHOTREXATE
     Route: 058
  180. METHOTREXATE [Suspect]
     Active Substance: METHOTREXATE
     Route: 065
  181. METHOTREXATE [Suspect]
     Active Substance: METHOTREXATE
     Route: 058
  182. METHOTREXATE [Suspect]
     Active Substance: METHOTREXATE
     Route: 058
  183. METHOTREXATE [Suspect]
     Active Substance: METHOTREXATE
     Route: 058
  184. METHOTREXATE [Suspect]
     Active Substance: METHOTREXATE
     Dosage: UNKNOWN
     Route: 065
  185. METHOTREXATE [Suspect]
     Active Substance: METHOTREXATE
     Dosage: SOLUTION
     Route: 058
  186. METHOTREXATE [Suspect]
     Active Substance: METHOTREXATE
     Dosage: SOLUTION
     Route: 058
  187. METHOTREXATE [Suspect]
     Active Substance: METHOTREXATE
     Dosage: SOLUTION
     Route: 058
  188. METHOTREXATE [Suspect]
     Active Substance: METHOTREXATE
     Route: 048
  189. METHOTREXATE [Suspect]
     Active Substance: METHOTREXATE
     Route: 065
  190. METHOTREXATE [Suspect]
     Active Substance: METHOTREXATE
     Dosage: SOLUTION
     Route: 058
  191. METHOTREXATE [Suspect]
     Active Substance: METHOTREXATE
     Route: 065
  192. METHOTREXATE [Suspect]
     Active Substance: METHOTREXATE
     Route: 048
  193. METHOTREXATE [Suspect]
     Active Substance: METHOTREXATE
     Route: 065
  194. METHOTREXATE [Suspect]
     Active Substance: METHOTREXATE
     Route: 065
  195. METHOTREXATE [Suspect]
     Active Substance: METHOTREXATE
     Route: 048
  196. OTEZLA [Suspect]
     Active Substance: APREMILAST
     Indication: Rheumatoid arthritis
     Dosage: UNKNOWN
     Route: 065
  197. OTEZLA [Suspect]
     Active Substance: APREMILAST
     Indication: Psoriatic arthropathy
     Route: 065
  198. OTEZLA [Suspect]
     Active Substance: APREMILAST
     Indication: Psoriasis
     Dosage: UNKNOWN
     Route: 065
  199. OTEZLA [Suspect]
     Active Substance: APREMILAST
     Route: 065
  200. OTEZLA [Suspect]
     Active Substance: APREMILAST
     Route: 048
  201. OTEZLA [Suspect]
     Active Substance: APREMILAST
     Route: 048
  202. RITUXIMAB [Suspect]
     Active Substance: RITUXIMAB
     Indication: Rheumatoid arthritis
     Dosage: 1 EVERY 24 HOURS
     Route: 065
  203. RITUXIMAB [Suspect]
     Active Substance: RITUXIMAB
     Indication: Psoriatic arthropathy
     Dosage: UNKNOWN
     Route: 042
  204. RITUXIMAB [Suspect]
     Active Substance: RITUXIMAB
     Route: 065
  205. RITUXIMAB [Suspect]
     Active Substance: RITUXIMAB
     Route: 065
  206. RITUXIMAB [Suspect]
     Active Substance: RITUXIMAB
     Route: 042
  207. RITUXIMAB [Suspect]
     Active Substance: RITUXIMAB
     Route: 042
  208. RITUXIMAB [Suspect]
     Active Substance: RITUXIMAB
     Route: 042
  209. RITUXIMAB [Suspect]
     Active Substance: RITUXIMAB
     Route: 065
  210. RITUXIMAB [Suspect]
     Active Substance: RITUXIMAB
     Route: 042
  211. RITUXIMAB [Suspect]
     Active Substance: RITUXIMAB
     Route: 042
  212. RITUXIMAB [Suspect]
     Active Substance: RITUXIMAB
     Route: 042
  213. RITUXIMAB [Suspect]
     Active Substance: RITUXIMAB
     Route: 065
  214. RITUXIMAB [Suspect]
     Active Substance: RITUXIMAB
     Dosage: UNKNOWN
     Route: 042
  215. SIMPONI [Suspect]
     Active Substance: GOLIMUMAB
     Indication: Psoriatic arthropathy
     Dosage: UNKNOWN
     Route: 058
  216. SIMPONI [Suspect]
     Active Substance: GOLIMUMAB
     Dosage: SOLUTION SUBCUTANEOUS
     Route: 058
  217. SIMPONI [Suspect]
     Active Substance: GOLIMUMAB
     Dosage: UNKNOWN
     Route: 065
  218. ALENDRONATE SODIUM [Suspect]
     Active Substance: ALENDRONATE SODIUM
     Indication: Product used for unknown indication
     Route: 065
  219. APREMILAST [Suspect]
     Active Substance: APREMILAST
     Indication: Rheumatoid arthritis
     Route: 065
  220. APREMILAST [Suspect]
     Active Substance: APREMILAST
     Indication: Psoriatic arthropathy
     Route: 065
  221. APREMILAST [Suspect]
     Active Substance: APREMILAST
     Indication: Psoriasis
     Dosage: UNKNOWN
     Route: 065
  222. DIPHENHYDRAMINE HYDROCHLORIDE [Suspect]
     Active Substance: DIPHENHYDRAMINE HYDROCHLORIDE
     Indication: Product used for unknown indication
     Dosage: UNKNOWN
     Route: 065
  223. ERELZI [Suspect]
     Active Substance: ETANERCEPT-SZZS
     Indication: Rheumatoid arthritis
     Dosage: UNKNOWN
     Route: 065
  224. ERELZI [Suspect]
     Active Substance: ETANERCEPT-SZZS
     Indication: Psoriatic arthropathy
  225. ERELZI [Suspect]
     Active Substance: ETANERCEPT-SZZS
     Indication: Psoriasis
  226. HYDROXYCHLOROQUINE SULFATE [Suspect]
     Active Substance: HYDROXYCHLOROQUINE SULFATE
     Indication: Rheumatoid arthritis
     Dosage: UNKNOWN
     Route: 065
  227. HYDROXYCHLOROQUINE SULFATE [Suspect]
     Active Substance: HYDROXYCHLOROQUINE SULFATE
     Indication: Product used for unknown indication
     Dosage: UNKNOWN
     Route: 065
  228. HYDROXYCHLOROQUINE SULFATE [Suspect]
     Active Substance: HYDROXYCHLOROQUINE SULFATE
     Route: 065
  229. ORENCIA [Suspect]
     Active Substance: ABATACEPT
     Indication: Rheumatoid arthritis
     Dosage: UNKNOWN
     Route: 065
  230. ORENCIA [Suspect]
     Active Substance: ABATACEPT
     Indication: Psoriatic arthropathy
     Dosage: UNKNOWN
     Route: 058
  231. REMICADE [Suspect]
     Active Substance: INFLIXIMAB
     Indication: Product used for unknown indication
     Dosage: POWDER FOR SOLUTION INTRAVENOUS
     Route: 042
  232. REMICADE [Suspect]
     Active Substance: INFLIXIMAB
     Dosage: UNKNOWN- POWDER FOR SOLUTION FOR INJECTION/INFUSION
     Route: 042
  233. STELARA [Suspect]
     Active Substance: USTEKINUMAB
     Indication: Psoriatic arthropathy
     Dosage: SOLUTION
     Route: 065
  234. STELARA [Suspect]
     Active Substance: USTEKINUMAB
     Dosage: SOLUTION
     Route: 058
  235. STELARA [Suspect]
     Active Substance: USTEKINUMAB
     Dosage: SOLUTION SUBCUTANEOUS
     Route: 065
  236. SULFAMETHOXAZOLE [Suspect]
     Active Substance: SULFAMETHOXAZOLE
     Indication: Product used for unknown indication
     Route: 048
  237. SULFASALAZINE [Suspect]
     Active Substance: SULFASALAZINE
     Indication: Rheumatoid arthritis
     Dosage: UNKNOWN
     Route: 065
  238. SULFASALAZINE [Suspect]
     Active Substance: SULFASALAZINE
     Indication: Psoriatic arthropathy
     Route: 048
  239. SULFASALAZINE [Suspect]
     Active Substance: SULFASALAZINE
     Route: 065
  240. CANNABIS SATIVA SUBSP. INDICA TOP [Concomitant]
     Active Substance: CANNABIS SATIVA SUBSP. INDICA TOP
     Indication: Product used for unknown indication
     Dosage: UNKNOWN
     Route: 065
  241. CANNABIS SATIVA FLOWERING TOP [Concomitant]
     Active Substance: CANNABIS SATIVA FLOWERING TOP
     Indication: Product used for unknown indication
     Dosage: UNKNOWN
     Route: 065
  242. CHOLECALCIFEROL [Concomitant]
     Active Substance: CHOLECALCIFEROL
     Indication: Product used for unknown indication
     Dosage: UNKNOWN
     Route: 065
  243. COLCHICINE [Concomitant]
     Active Substance: COLCHICINE
     Indication: Product used for unknown indication
     Dosage: UNKNOWN
     Route: 065
  244. DEXILANT [Concomitant]
     Active Substance: DEXLANSOPRAZOLE
     Indication: Product used for unknown indication
     Dosage: DELAYED RELEASE
     Route: 065
  245. FEBUXOSTAT [Concomitant]
     Active Substance: FEBUXOSTAT
     Indication: Product used for unknown indication
     Dosage: UNKNOWN
     Route: 065
  246. FOLIC ACID [Concomitant]
     Active Substance: FOLIC ACID
     Indication: Product used for unknown indication
     Dosage: UNKNOWN
     Route: 065
  247. GRAVOL [Concomitant]
     Active Substance: DIMENHYDRINATE
     Indication: Product used for unknown indication
     Dosage: UNKNOWN
     Route: 065
  248. NITRAZEPAM [Concomitant]
     Active Substance: NITRAZEPAM
     Indication: Product used for unknown indication
     Dosage: UNKNOWN
     Route: 065
  249. NAPROXEN [Concomitant]
     Active Substance: NAPROXEN
     Indication: Product used for unknown indication
     Dosage: UNKNOWN
     Route: 065
  250. NITRAZEPAM [Concomitant]
     Active Substance: NITRAZEPAM
     Indication: Product used for unknown indication
     Dosage: UNKNOWN
     Route: 065
  251. OXYCODONE [Concomitant]
     Active Substance: OXYCODONE
     Indication: Product used for unknown indication
     Dosage: UNKNOWN
     Route: 065
  252. OXYCODONE [Concomitant]
     Active Substance: OXYCODONE
     Indication: Product used for unknown indication
     Dosage: EXTENDED RELEASE
     Route: 065
  253. PREDNISONE [Concomitant]
     Active Substance: PREDNISONE
     Indication: Product used for unknown indication
     Dosage: UNKNOWN
     Route: 065
  254. RISEDRONATE SODIUM [Concomitant]
     Active Substance: RISEDRONATE SODIUM
     Indication: Product used for unknown indication
     Dosage: UNKNOWN
     Route: 065
  255. ULORIC [Concomitant]
     Active Substance: FEBUXOSTAT
     Indication: Product used for unknown indication
     Dosage: UNKNOWN
     Route: 065
  256. XELJANZ [Concomitant]
     Active Substance: TOFACITINIB CITRATE
     Indication: Product used for unknown indication
     Dosage: UNKNOWN
     Route: 065

REACTIONS (76)
  - Abdominal discomfort [Unknown]
  - Adverse event [Unknown]
  - Alanine aminotransferase abnormal [Unknown]
  - Alanine aminotransferase increased [Unknown]
  - Alopecia [Unknown]
  - Arthralgia [Unknown]
  - Arthritis [Unknown]
  - Arthropathy [Unknown]
  - Aspartate aminotransferase increased [Unknown]
  - Basal cell carcinoma [Unknown]
  - Blood creatinine increased [Unknown]
  - Blood parathyroid hormone decreased [Unknown]
  - Blood pressure systolic increased [Unknown]
  - C-reactive protein abnormal [Unknown]
  - C-reactive protein increased [Unknown]
  - Condition aggravated [Unknown]
  - Decreased appetite [Unknown]
  - Diarrhoea [Unknown]
  - Drug eruption [Unknown]
  - Drug hypersensitivity [Unknown]
  - Drug intolerance [Unknown]
  - Enthesopathy [Unknown]
  - Erythema [Unknown]
  - Fatigue [Unknown]
  - Fear of injection [Unknown]
  - Gastric disorder [Unknown]
  - General physical health deterioration [Unknown]
  - Granuloma [Unknown]
  - Headache [Unknown]
  - Hypercalcaemia [Unknown]
  - Hypersensitivity [Unknown]
  - Hypertension [Unknown]
  - Inflammation [Unknown]
  - Infusion related reaction [Unknown]
  - Insomnia [Unknown]
  - Joint injury [Unknown]
  - Joint swelling [Unknown]
  - Loss of personal independence in daily activities [Unknown]
  - Malaise [Unknown]
  - Mobility decreased [Unknown]
  - Musculoskeletal disorder [Unknown]
  - Musculoskeletal stiffness [Unknown]
  - Nausea [Unknown]
  - Osteomyelitis [Unknown]
  - Pain [Unknown]
  - Panniculitis [Unknown]
  - Peripheral swelling [Unknown]
  - Psoriatic arthropathy [Unknown]
  - Pulmonary fibrosis [Unknown]
  - Rash [Unknown]
  - Rash pruritic [Unknown]
  - Red blood cell sedimentation rate [Unknown]
  - Red blood cell sedimentation rate increased [Unknown]
  - Rheumatoid arthritis [Unknown]
  - Rheumatoid lung [Unknown]
  - Rheumatoid nodule [Unknown]
  - Skin necrosis [Unknown]
  - Skin ulcer [Unknown]
  - Synovitis [Unknown]
  - Tendonitis [Unknown]
  - Tenosynovitis [Unknown]
  - Tongue disorder [Unknown]
  - Ulcer [Unknown]
  - Urticaria [Unknown]
  - Drug tolerance [Unknown]
  - Drug tolerance decreased [Unknown]
  - Treatment failure [Unknown]
  - Therapy non-responder [Unknown]
  - Therapeutic response decreased [Unknown]
  - Therapeutic product effect incomplete [Unknown]
  - Therapeutic product effect decreased [Unknown]
  - Drug ineffective [Unknown]
  - Overdose [Unknown]
  - Contraindicated product administered [Unknown]
  - Product use issue [Unknown]
  - Off label use [Unknown]
